FAERS Safety Report 9640109 (Version 2)
Quarter: 2013Q4

REPORT INFORMATION
  Report Type: Report from Study
  Country: US (occurrence: US)
  Receive Date: 20131023
  Receipt Date: 20131023
  Transmission Date: 20140711
  Serious: Yes (Hospitalization, Other)
  Sender: FDA-Public Use
  Company Number: PHHO2012US005441

PATIENT
  Age: 53 Year
  Sex: Male

DRUGS (2)
  1. SOM230 [Suspect]
     Indication: PANCREATIC CARCINOMA
     Dosage: 900 UG, BID
     Route: 058
     Dates: start: 20120402, end: 20120402
  2. ALBUTEROL [Concomitant]

REACTIONS (11)
  - Hyperglycaemia [Recovered/Resolved]
  - Vomiting [Recovered/Resolved]
  - Presyncope [Recovered/Resolved]
  - Dyspnoea [Recovered/Resolved]
  - Respiratory failure [Recovered/Resolved]
  - Urinary tract infection [Recovered/Resolved]
  - Sinus tachycardia [Recovered/Resolved]
  - Device related infection [Recovered/Resolved]
  - Peripheral motor neuropathy [Recovered/Resolved]
  - Electrocardiogram QT prolonged [Recovered/Resolved]
  - Ileus [Recovered/Resolved]
